FAERS Safety Report 25111344 (Version 2)
Quarter: 2025Q2

REPORT INFORMATION
  Report Type: Spontaneous
  Country: JP (occurrence: JP)
  Receive Date: 20250324
  Receipt Date: 20250404
  Transmission Date: 20250717
  Serious: Yes (Death, Other)
  Sender: VERICEL
  Company Number: JP-VERICEL-JP-VCEL-25-000071

PATIENT
  Age: 60 Year
  Sex: Male
  Weight: 47.8 kg

DRUGS (4)
  1. BROMELAINS [Suspect]
     Active Substance: BROMELAINS
     Indication: Burns second degree
     Route: 061
     Dates: start: 20250130, end: 20250130
  2. BROMELAINS [Suspect]
     Active Substance: BROMELAINS
     Indication: Burns third degree
  3. FENTANYL [Concomitant]
     Active Substance: FENTANYL
     Indication: Pain management
     Route: 042
     Dates: start: 20250301
  4. PROPOFOL [Concomitant]
     Active Substance: PROPOFOL
     Indication: Pain management
     Route: 042
     Dates: start: 20250301

REACTIONS (2)
  - Multiple organ dysfunction syndrome [Fatal]
  - Sepsis [Fatal]

NARRATIVE: CASE EVENT DATE: 20250221
